FAERS Safety Report 25517099 (Version 1)
Quarter: 2025Q3

REPORT INFORMATION
  Report Type: Spontaneous
  Country: GB (occurrence: GB)
  Receive Date: 20250704
  Receipt Date: 20250704
  Transmission Date: 20251021
  Serious: Yes (Other)
  Sender: AUROBINDO
  Company Number: GB-MHRA-MED-202506190851019690-HZBVK

PATIENT
  Age: 66 Year
  Sex: Female
  Weight: 75 kg

DRUGS (2)
  1. ROPINIROLE [Suspect]
     Active Substance: ROPINIROLE
     Indication: Product used for unknown indication
     Dates: end: 20250612
  2. FLUOXETINE [Concomitant]
     Active Substance: FLUOXETINE HYDROCHLORIDE
     Indication: Anxiety
     Dates: start: 2022, end: 20250607

REACTIONS (1)
  - Restless leg augmentation syndrome [Not Recovered/Not Resolved]

NARRATIVE: CASE EVENT DATE: 20250506
